FAERS Safety Report 22821326 (Version 4)
Quarter: 2023Q4

REPORT INFORMATION
  Report Type: Report from Study
  Country: CA (occurrence: CA)
  Receive Date: 20230814
  Receipt Date: 20231219
  Transmission Date: 20240110
  Serious: Yes (Other)
  Sender: FDA-Public Use
  Company Number: CA-OTSUKA-2022_032735

PATIENT
  Age: 77 Year
  Sex: Female

DRUGS (6)
  1. CEDAZURIDINE\DECITABINE [Suspect]
     Active Substance: CEDAZURIDINE\DECITABINE
     Indication: Chronic myelomonocytic leukaemia
     Dosage: UNK (5 PILLS/CYCLE)
     Route: 065
     Dates: start: 20220524
  2. CEDAZURIDINE\DECITABINE [Suspect]
     Active Substance: CEDAZURIDINE\DECITABINE
     Dosage: UNK (4 PILLS/CYCLE)
     Route: 065
  3. CEDAZURIDINE\DECITABINE [Suspect]
     Active Substance: CEDAZURIDINE\DECITABINE
     Dosage: UNK (3 PILLS/CYCLE)
     Route: 065
  4. CEDAZURIDINE\DECITABINE [Suspect]
     Active Substance: CEDAZURIDINE\DECITABINE
     Dosage: UNK (5 WEEKS)
     Route: 065
  5. CEDAZURIDINE\DECITABINE [Suspect]
     Active Substance: CEDAZURIDINE\DECITABINE
     Dosage: UNK 6 WEEKS (42 DAYS)
     Route: 065
  6. CEDAZURIDINE\DECITABINE [Suspect]
     Active Substance: CEDAZURIDINE\DECITABINE
     Dosage: 1 DF, QD (3 PILLS EVERY 56 DAYS (EVERY 8 WEEKS)/ON DAYS 1-3 OF EVERY 56 DAYS
     Route: 048

REACTIONS (7)
  - Cytopenia [Recovered/Resolved]
  - Myelosuppression [Unknown]
  - Diverticulitis [Unknown]
  - Full blood count abnormal [Recovered/Resolved]
  - Nausea [Unknown]
  - Therapy interrupted [Unknown]
  - Product distribution issue [Unknown]

NARRATIVE: CASE EVENT DATE: 20230701
